FAERS Safety Report 6808007-1 (Version None)
Quarter: 2010Q2

REPORT INFORMATION
  Report Type: 
  Country: None (occurrence: None)
  Receive Date: 20100629
  Receipt Date: 20090217
  Transmission Date: 20101027
  Serious: No
  Sender: FDA-Public Use
  Company Number: US-PFIZER INC-2009170244

PATIENT
  Age: 51 Year
  Sex: Female

DRUGS (4)
  1. XANAX [Suspect]
     Indication: ANXIETY
  2. EXCEDRIN (MIGRAINE) [Suspect]
     Dosage: UNK
     Route: 048
     Dates: start: 20081228, end: 20081228
  3. ALL OTHER THERAPEUTIC PRODUCTS [Concomitant]
     Dosage: UNK
  4. DEXATRIM ^SAUTER^ [Concomitant]
     Dosage: UNK

REACTIONS (2)
  - HEART RATE INCREASED [None]
  - PANIC ATTACK [None]
